FAERS Safety Report 11189916 (Version 1)
Quarter: 2015Q2

REPORT INFORMATION
  Report Type: Report from Study
  Country: US (occurrence: US)
  Receive Date: 20150615
  Receipt Date: 20150615
  Transmission Date: 20150821
  Serious: Yes (Hospitalization)
  Sender: FDA-Public Use
  Company Number: US-BAYER-2015-276215

PATIENT
  Age: 66 Year
  Sex: Male

DRUGS (1)
  1. NEXAVAR [Suspect]
     Active Substance: SORAFENIB
     Indication: HEPATOCELLULAR CARCINOMA
     Dosage: 200 MG, BID
     Route: 048
     Dates: start: 20150514, end: 20150530

REACTIONS (6)
  - Abdominal discomfort [None]
  - Dizziness [None]
  - Dehydration [None]
  - Vomiting [None]
  - Fatigue [None]
  - Abdominal pain [None]

NARRATIVE: CASE EVENT DATE: 20150518
